FAERS Safety Report 11152832 (Version 1)
Quarter: 2015Q2

REPORT INFORMATION
  Report Type: Spontaneous
  Country: CZ (occurrence: CZ)
  Receive Date: 20150601
  Receipt Date: 20150601
  Transmission Date: 20150821
  Serious: Yes (Hospitalization)
  Sender: FDA-Public Use
  Company Number: CZ-EISAI MEDICAL RESEARCH-EC-2015-007186

PATIENT
  Age: 65 Year
  Sex: Female
  Weight: 60 kg

DRUGS (3)
  1. HALAVEN [Suspect]
     Active Substance: ERIBULIN MESYLATE
     Indication: BREAST CANCER
     Route: 041
     Dates: start: 20150318, end: 20150318
  2. MYCOMAX 100 [Concomitant]
     Indication: NEUTROPENIA
     Route: 048
     Dates: start: 20150318, end: 20150329
  3. ZARZIO 30 [Concomitant]
     Indication: NEUTROPENIA
     Route: 058
     Dates: start: 20150318, end: 20150329

REACTIONS (1)
  - Febrile neutropenia [Recovered/Resolved]

NARRATIVE: CASE EVENT DATE: 20150325
